FAERS Safety Report 9562594 (Version 1)
Quarter: 2013Q3

REPORT INFORMATION
  Report Type: Spontaneous
  Country: US (occurrence: None)
  Receive Date: 20130926
  Receipt Date: 20130926
  Transmission Date: 20140515
  Serious: Yes (Hospitalization)
  Sender: FDA-Public Use
  Company Number: None

PATIENT
  Age: 38 Year
  Sex: Female
  Weight: 73 kg

DRUGS (4)
  1. OPANA [Suspect]
     Indication: DRUG ABUSE
  2. OXYCODONE [Concomitant]
  3. PHENERGAN [Concomitant]
  4. FLUOXETINE [Concomitant]

REACTIONS (2)
  - Thrombotic thrombocytopenic purpura [None]
  - Renal failure [None]
